FAERS Safety Report 11811309 (Version 9)
Quarter: 2016Q1

REPORT INFORMATION
  Report Type: Spontaneous
  Country: JP (occurrence: JP)
  Receive Date: 20151208
  Receipt Date: 20160328
  Transmission Date: 20160525
  Serious: Yes (Life-Threatening, Hospitalization, Disabling)
  Sender: FDA-Public Use
  Company Number: PHJP2015JP021783

PATIENT
  Age: 54 Year
  Sex: Female
  Weight: 67 kg

DRUGS (7)
  1. SOLU-MEDROL [Suspect]
     Active Substance: METHYLPREDNISOLONE SODIUM SUCCINATE
     Indication: MULTIPLE SCLEROSIS RELAPSE
     Dosage: 1000 MG, QD
     Route: 041
     Dates: start: 20151021, end: 20151021
  2. URSODEOXYCHOLIC AC [Concomitant]
     Indication: PRODUCT USED FOR UNKNOWN INDICATION
     Dosage: 100 MG, TID
     Route: 048
     Dates: end: 20151123
  3. GILENYA [Suspect]
     Active Substance: FINGOLIMOD HYDROCHLORIDE
     Indication: MULTIPLE SCLEROSIS
     Dosage: 0.5 MG, QD
     Route: 048
     Dates: start: 20150624, end: 20151123
  4. SOLU-MEDROL [Suspect]
     Active Substance: METHYLPREDNISOLONE SODIUM SUCCINATE
     Dosage: UNK
     Route: 041
     Dates: start: 20151224
  5. SOLU-MEDROL [Suspect]
     Active Substance: METHYLPREDNISOLONE SODIUM SUCCINATE
     Dosage: 30 MG, UNK
     Route: 041
  6. EDIROL [Concomitant]
     Active Substance: ELDECALCITOL
     Indication: PRODUCT USED FOR UNKNOWN INDICATION
     Dosage: 0.75 UG, QD
     Route: 048
     Dates: end: 20151123
  7. AMINOLEBAN EN [Concomitant]
     Active Substance: UNSPECIFIED INGREDIENT
     Indication: PRODUCT USED FOR UNKNOWN INDICATION
     Dosage: 50 G, QD
     Route: 048
     Dates: end: 20151123

REACTIONS (20)
  - Malaise [Unknown]
  - Haemoglobin decreased [Unknown]
  - Hepatic atrophy [Unknown]
  - Platelet count decreased [Unknown]
  - Pyrexia [Unknown]
  - Acute kidney injury [Unknown]
  - Communication disorder [Unknown]
  - Multiple sclerosis relapse [Unknown]
  - Acute hepatic failure [Not Recovered/Not Resolved]
  - Altered state of consciousness [Unknown]
  - Ascites [Unknown]
  - General physical health deterioration [Unknown]
  - Cytomegalovirus viraemia [Unknown]
  - Jaundice [Unknown]
  - Bacteraemia [Unknown]
  - Hepatic encephalopathy [Unknown]
  - Prothrombin time prolonged [Unknown]
  - White blood cell count increased [Unknown]
  - Bile duct stone [Unknown]
  - Enterococcal bacteraemia [Unknown]

NARRATIVE: CASE EVENT DATE: 20151021
